FAERS Safety Report 22211591 (Version 2)
Quarter: 2023Q2

REPORT INFORMATION
  Report Type: Spontaneous
  Country: US (occurrence: US)
  Receive Date: 20230414
  Receipt Date: 20230526
  Transmission Date: 20230721
  Serious: Yes (Other)
  Sender: FDA-Public Use
  Company Number: US-BAYER-2023A048599

PATIENT
  Age: 15 Year
  Sex: Female

DRUGS (1)
  1. KYLEENA [Suspect]
     Active Substance: LEVONORGESTREL
     Indication: Contraception
     Dosage: 17.5?G/DAY
     Route: 015
     Dates: start: 20221123, end: 20230317

REACTIONS (6)
  - Genital haemorrhage [Recovered/Resolved]
  - Heavy menstrual bleeding [Recovered/Resolved]
  - Hypomenorrhoea [Recovered/Resolved]
  - Device expulsion [Recovered/Resolved]
  - Coital bleeding [None]
  - Amenorrhoea [Not Recovered/Not Resolved]

NARRATIVE: CASE EVENT DATE: 20230101
